FAERS Safety Report 17827352 (Version 1)
Quarter: 2020Q2

REPORT INFORMATION
  Report Type: Spontaneous
  Country: US (occurrence: US)
  Receive Date: 20200527
  Receipt Date: 20200527
  Transmission Date: 20200714
  Serious: No
  Sender: FDA-Public Use
  Company Number: US-SHIRE-US202017053

PATIENT
  Sex: Female
  Weight: 45.35 kg

DRUGS (5)
  1. VYVANSE [Suspect]
     Active Substance: LISDEXAMFETAMINE DIMESYLATE
     Dosage: 40 MILLIGRAM, 1X/DAY:QD
     Route: 048
     Dates: start: 2019
  2. INTUNIV [Suspect]
     Active Substance: GUANFACINE HYDROCHLORIDE
     Indication: GENERALISED ANXIETY DISORDER
     Dosage: 3 MILLIGRAM, 1X/DAY:QD
     Route: 048
     Dates: start: 2019
  3. VYVANSE [Suspect]
     Active Substance: LISDEXAMFETAMINE DIMESYLATE
     Indication: ATTENTION DEFICIT HYPERACTIVITY DISORDER
     Dosage: 30 MILLIGRAM, 1X/DAY:QD
     Route: 048
     Dates: end: 2019
  4. INTUNIV [Suspect]
     Active Substance: GUANFACINE HYDROCHLORIDE
     Indication: ADJUSTMENT DISORDER
  5. ZOLOFT [Concomitant]
     Active Substance: SERTRALINE HYDROCHLORIDE
     Indication: PRODUCT USED FOR UNKNOWN INDICATION
     Dosage: 50 MILLIGRAM, 1X/DAY:QD
     Route: 048

REACTIONS (5)
  - Impulsive behaviour [Unknown]
  - Product physical issue [Unknown]
  - Mental disorder [Not Recovered/Not Resolved]
  - Unevaluable event [Unknown]
  - Aggression [Unknown]

NARRATIVE: CASE EVENT DATE: 2019
